FAERS Safety Report 6644388-X (Version None)
Quarter: 2010Q1

REPORT INFORMATION
  Report Type: 
  Country: None (occurrence: None)
  Receive Date: 20100322
  Receipt Date: 20100316
  Transmission Date: 20100710
  Serious: Yes (Disabling, Congenital Anomaly, Other)
  Sender: FDA-Public Use
  Company Number: US-ROXANE LABORATORIES, INC.-2010-RO-00271RO

PATIENT
  Age: 4 Year
  Sex: Female

DRUGS (5)
  1. ZIDOVUDINE [Suspect]
     Indication: PROPHYLAXIS AGAINST HIV INFECTION
  2. LAMIVUDINE [Suspect]
     Indication: PROPHYLAXIS AGAINST HIV INFECTION
  3. NEVIRAPINE [Suspect]
     Indication: PROPHYLAXIS AGAINST HIV INFECTION
  4. NELFINAVIR [Suspect]
     Indication: DRUG EXPOSURE DURING PREGNANCY
     Route: 064
  5. LAMIVUDINE + ZIDOVUDINE [Suspect]
     Indication: DRUG EXPOSURE DURING PREGNANCY
     Route: 064

REACTIONS (14)
  - ABASIA [None]
  - CATARACT CONGENITAL [None]
  - DEVELOPMENTAL DELAY [None]
  - DYSMORPHISM [None]
  - GROWTH RETARDATION [None]
  - HYPERPARATHYROIDISM [None]
  - HYPOTONIA [None]
  - LACTIC ACIDOSIS [None]
  - MENTAL RETARDATION [None]
  - MITOCHONDRIAL DNA MUTATION [None]
  - MITOCHONDRIAL TOXICITY [None]
  - MOVEMENT DISORDER [None]
  - PANCREATITIS [None]
  - SPEECH DISORDER DEVELOPMENTAL [None]
